FAERS Safety Report 9157630 (Version 1)
Quarter: 2013Q1

REPORT INFORMATION
  Report Type: Spontaneous
  Country: US (occurrence: US)
  Receive Date: 20130311
  Receipt Date: 20130311
  Transmission Date: 20140127
  Serious: Yes (Hospitalization, Other)
  Sender: FDA-Public Use
  Company Number: US-RB-050755-13

PATIENT
  Age: 40 Year
  Sex: Male

DRUGS (8)
  1. SUBOXONE TABLET [Suspect]
     Indication: DRUG DEPENDENCE
     Route: 060
     Dates: start: 2012, end: 2013
  2. TRAMADOL [Suspect]
     Indication: SUICIDE ATTEMPT
     Dosage: DOSING DETAILS UNKNOWN
     Route: 048
     Dates: start: 20130206, end: 20130206
  3. REMERON [Suspect]
     Indication: SUICIDE ATTEMPT
     Dosage: DOSING DETAILS UNKNOWN
     Route: 048
     Dates: start: 20130206, end: 20130206
  4. WELLBUTRIN [Concomitant]
     Indication: DEPRESSION
     Dosage: DOSING DETAILS UNKNOWN
     Route: 048
  5. NEURONTIN [Concomitant]
     Indication: AFFECTIVE DISORDER
     Dosage: DOSING DETAILS UNKNOWN
     Route: 048
  6. THORAZINE [Concomitant]
     Indication: AFFECTIVE DISORDER
     Dosage: DOSING DETAILS UNKNOWN
     Route: 065
  7. CELEXA [Concomitant]
     Indication: DEPRESSION
     Dosage: DOSING DETAILS UNKNOWN
     Route: 048
  8. PRILOSEC [Concomitant]
     Indication: GASTROOESOPHAGEAL REFLUX DISEASE
     Dosage: DOSING DETAILS UNKNOWN
     Route: 065

REACTIONS (9)
  - Suicidal ideation [Recovered/Resolved]
  - Anxiety [Not Recovered/Not Resolved]
  - Hyperhidrosis [Not Recovered/Not Resolved]
  - Pain [Not Recovered/Not Resolved]
  - Abnormal dreams [Not Recovered/Not Resolved]
  - Wrong technique in drug usage process [Recovered/Resolved]
  - Depression [Not Recovered/Not Resolved]
  - Suicide attempt [Recovered/Resolved]
  - Drug dependence [Not Recovered/Not Resolved]
